FAERS Safety Report 24862192 (Version 1)
Quarter: 2025Q1

REPORT INFORMATION
  Report Type: Spontaneous
  Country: GB (occurrence: GB)
  Receive Date: 20250120
  Receipt Date: 20250120
  Transmission Date: 20250409
  Serious: Yes (Disabling)
  Sender: DEXCEL
  Company Number: None

PATIENT
  Age: 77 Year
  Sex: Male

DRUGS (15)
  1. DandrazolDANDRAZOL (Specific MP Group PGR5420290) [Concomitant]
  2. CANAGLIFLOZIN [Suspect]
     Active Substance: CANAGLIFLOZIN
  3. ASPIRIN [Suspect]
     Active Substance: ASPIRIN
  4. CLOPIDOGREL [Suspect]
     Active Substance: CLOPIDOGREL BISULFATE
  5. BISOPROLOL [Suspect]
     Active Substance: BISOPROLOL
  6. ATORVASTATIN [Suspect]
     Active Substance: ATORVASTATIN
  7. Co-codamolCO-CODAMOL [Concomitant]
  8. Diclofenac diethylammoniumDICLOFENAC DIETHYLAMMONIUM [Concomitant]
  9. Gaviscon AdvanceGAVISCON ADVANCE (Specific MP Group PGR5420602) [Concomitant]
  10. SITAGLIPTIN [Suspect]
     Active Substance: SITAGLIPTIN
  11. QUININE [Suspect]
     Active Substance: QUININE
  12. PREGABALIN [Suspect]
     Active Substance: PREGABALIN
  13. METFORMIN [Suspect]
     Active Substance: METFORMIN HYDROCHLORIDE
  14. LANSOPRAZOLE [Suspect]
     Active Substance: LANSOPRAZOLE
  15. LACTULOSE [Suspect]
     Active Substance: LACTULOSE

REACTIONS (1)
  - Leg amputation [Recovered/Resolved]
